FAERS Safety Report 10244513 (Version 1)
Quarter: 2014Q2

REPORT INFORMATION
  Report Type: Spontaneous
  Country: GB (occurrence: GB)
  Receive Date: 20140618
  Receipt Date: 20140618
  Transmission Date: 20141212
  Serious: Yes (Life-Threatening)
  Sender: FDA-Public Use
  Company Number: GB-TEVA-488076ISR

PATIENT
  Age: 45 Year
  Sex: Female

DRUGS (5)
  1. ATORVASTATIN [Suspect]
     Indication: HYPERLIPIDAEMIA
     Route: 048
     Dates: start: 20140221, end: 20140321
  2. PROTHIADEN [Concomitant]
     Indication: DEPRESSION
     Dosage: 150 MILLIGRAM DAILY; AT NIGHT
     Route: 048
     Dates: start: 20080129
  3. ZIMOVANE [Concomitant]
     Indication: DEPRESSION
     Dosage: 3.75 MILLIGRAM DAILY; AT NIGHT
     Route: 048
     Dates: start: 20100212
  4. RANITIDINE [Concomitant]
     Dosage: 150 MILLIGRAM DAILY;
     Dates: start: 20101006
  5. PROPRANOLOL [Concomitant]
     Dosage: 40 MILLIGRAM DAILY; AT NIGHT
     Route: 048
     Dates: start: 19990723

REACTIONS (1)
  - Suicidal ideation [Recovered/Resolved]
